FAERS Safety Report 7248920-7 (Version None)
Quarter: 2011Q1

REPORT INFORMATION
  Report Type: 
  Country: None (occurrence: None)
  Receive Date: 20110128
  Receipt Date: 20100712
  Transmission Date: 20110831
  Serious: Yes (Hospitalization, Other)
  Sender: FDA-Public Use
  Company Number: US-BAYER-200936438NA

PATIENT
  Sex: Female
  Weight: 57 kg

DRUGS (7)
  1. YASMIN [Suspect]
     Indication: CONTRACEPTION
     Dosage: 1 DF (DAILY DOSE), QD, ORAL
     Route: 048
     Dates: start: 20020101, end: 20071107
  2. IBUPROFEN [Concomitant]
  3. ACCUTANE [Concomitant]
  4. ANTIBIOTICS [Concomitant]
  5. ORTHO TRI-CYCLEN LO [Concomitant]
     Dosage: UNK
     Dates: start: 20041101, end: 20050301
  6. ASCORBIC ACID [Concomitant]
     Dosage: UNK
  7. ORTHO TRI-CYCLEN LO [Concomitant]
     Dosage: UNK
     Dates: start: 20040601, end: 20040801

REACTIONS (15)
  - FLANK PAIN [None]
  - DEEP VEIN THROMBOSIS [None]
  - ERYTHEMA [None]
  - CHEST DISCOMFORT [None]
  - ABDOMINAL PAIN LOWER [None]
  - PYELONEPHRITIS [None]
  - COUGH [None]
  - PAIN IN EXTREMITY [None]
  - SNEEZING [None]
  - CHEST PAIN [None]
  - OEDEMA PERIPHERAL [None]
  - TENDERNESS [None]
  - DYSPNOEA [None]
  - MUSCULOSKELETAL DISCOMFORT [None]
  - PULMONARY EMBOLISM [None]
